FAERS Safety Report 6259947-6 (Version None)
Quarter: 2009Q3

REPORT INFORMATION
  Report Type: 
  Country: None (occurrence: None)
  Receive Date: 20090706
  Receipt Date: 20090706
  Transmission Date: 20100115
  Serious: No
  Sender: FDA-Public Use
  Company Number: None

PATIENT
  Age: 37 Year
  Sex: Female
  Weight: 49.8957 kg

DRUGS (2)
  1. LANTUS [Suspect]
     Indication: TYPE 1 DIABETES MELLITUS
     Dosage: 11 UNITS ONCE DAILY SQ
     Route: 058
     Dates: start: 20051001, end: 20070101
  2. HUMULIN R [Concomitant]

REACTIONS (1)
  - ABNORMAL FAECES [None]
